FAERS Safety Report 9219465 (Version 1)
Quarter: 2013Q2

REPORT INFORMATION
  Report Type: Report from Study
  Country: FR (occurrence: FR)
  Receive Date: 20130409
  Receipt Date: 20130409
  Transmission Date: 20140414
  Serious: Yes (Life-Threatening, Hospitalization, Other)
  Sender: FDA-Public Use
  Company Number: FR-CELGENEUS-056-21880-13034405

PATIENT
  Age: 83 Year
  Sex: Female
  Weight: 68 kg

DRUGS (2)
  1. REVLIMID [Suspect]
     Indication: PLASMA CELL MYELOMA
     Route: 048
     Dates: start: 20121021
  2. REVLIMID [Suspect]
     Route: 048
     Dates: end: 20130220

REACTIONS (1)
  - Plasma cell myeloma [Recovered/Resolved]
